FAERS Safety Report 23112351 (Version 3)
Quarter: 2024Q4

REPORT INFORMATION
  Report Type: Spontaneous
  Country: US (occurrence: US)
  Receive Date: 20231027
  Receipt Date: 20241216
  Transmission Date: 20250114
  Serious: No
  Sender: ENDO
  Company Number: ENDB23-03587

PATIENT
  Sex: Male

DRUGS (9)
  1. XIAFLEX [Suspect]
     Active Substance: COLLAGENASE CLOSTRIDIUM HISTOLYTICUM
     Indication: Peyronie^s disease
     Dosage: UNK UNKNOWN, UNKNOWN (FIRST CYCLE, FIRST INJECTION)
     Route: 051
     Dates: start: 20200128
  2. XIAFLEX [Suspect]
     Active Substance: COLLAGENASE CLOSTRIDIUM HISTOLYTICUM
     Dosage: UNK UNKNOWN, UNKNOWN (FIRST CYCLE, SECOND INJECTION)
     Route: 051
     Dates: start: 20200130
  3. XIAFLEX [Suspect]
     Active Substance: COLLAGENASE CLOSTRIDIUM HISTOLYTICUM
     Dosage: UNK UNKNOWN, UNKNOWN (SECOND CYCLE, FIRST INJECTION)
     Route: 051
     Dates: start: 20200311
  4. XIAFLEX [Suspect]
     Active Substance: COLLAGENASE CLOSTRIDIUM HISTOLYTICUM
     Dosage: UNK UNKNOWN, UNKNOWN (SECOND CYCLE, SECOND INJECTION)
     Route: 051
     Dates: start: 20200313
  5. XIAFLEX [Suspect]
     Active Substance: COLLAGENASE CLOSTRIDIUM HISTOLYTICUM
     Dosage: UNK UNKNOWN, UNKNOWN (THIRD CYCLE, FIRST INJECTION)
     Route: 051
     Dates: start: 20200428
  6. XIAFLEX [Suspect]
     Active Substance: COLLAGENASE CLOSTRIDIUM HISTOLYTICUM
     Dosage: UNK UNKNOWN, UNKNOWN (THIRD CYCLE, SECOND INJECTION)
     Route: 051
     Dates: start: 20200430
  7. XIAFLEX [Suspect]
     Active Substance: COLLAGENASE CLOSTRIDIUM HISTOLYTICUM
     Dosage: UNK UNKNOWN, UNKNOWN (FOURTH CYCLE FIRST INJECTION)
     Route: 051
     Dates: start: 20200616
  8. XIAFLEX [Suspect]
     Active Substance: COLLAGENASE CLOSTRIDIUM HISTOLYTICUM
     Dosage: UNK UNKNOWN, UNKNOWN (FOURTH CYCLE, SECOND INJECTION)
     Route: 051
     Dates: start: 20200618
  9. XIAFLEX [Suspect]
     Active Substance: COLLAGENASE CLOSTRIDIUM HISTOLYTICUM
     Dosage: UNK UNKNOWN, UNKNOWN (FIRST COURSE OF XIAFLEX)
     Route: 065
     Dates: start: 2017

REACTIONS (2)
  - Peyronie^s disease [Not Recovered/Not Resolved]
  - Disease recurrence [Not Recovered/Not Resolved]
